FAERS Safety Report 10367423 (Version 1)
Quarter: 2014Q1

REPORT INFORMATION
  Report Type: Spontaneous
  Country: US (occurrence: None)
  Receive Date: 20140306
  Receipt Date: 20140306
  Transmission Date: 20141002
  Serious: Yes (Other)
  Sender: FDA-Public Use
  Company Number: 163-21880-13071630

PATIENT
  Age: 55 Year
  Sex: Male
  Weight: 104.33 kg

DRUGS (11)
  1. REVLIMID (LENALIDOMIDE) (25 MILLIGRAM, CAPSULES) [Suspect]
     Indication: PLASMA CELL MYELOMA
     Route: 048
     Dates: start: 20110801, end: 20111121
  2. ZOMETA (ZOLEDRONIC ACID) (UNKNOWN) [Concomitant]
  3. OMEPRAZOLE (OMEPRAZOLE) (20 MILLIGRAM, CAPSULES) [Concomitant]
  4. ASPIRINE (ACETYLSALICYLIC ACID) (81 MILLIGRAM, TABLETS) [Concomitant]
  5. DEXAMETHASONE (DEXAMETHASONE) (UNKNOWN) [Concomitant]
  6. PROCHLORPERAZINE MALEATE (PROCHLORPERAZINE MALEATE) (10 MILLIGRAM, TABLETS) [Concomitant]
  7. ZOLPIDEM TARTRATE (ZOLPIDEM TARTRATE) (TABLETS) [Concomitant]
  8. ATORVASTATIN CALCIUM (ATORVASTATIN CALCIUM) (10 MILLIGRAM, TABLETS) [Concomitant]
  9. LEVOTHYROXINE SODIUM (LEVOTHYROXINE SODIUM) (TABLETS) [Concomitant]
  10. OXYCONTIN (OXYCODONE HYDROCHLORIDE) (TABLETS) [Concomitant]
  11. OXYCODONE (OXYCODONE) (TABLETS) [Concomitant]

REACTIONS (4)
  - Deep vein thrombosis [None]
  - Neuropathy peripheral [None]
  - Leukopenia [None]
  - Neutropenia [None]
